FAERS Safety Report 11929728 (Version 2)
Quarter: 2016Q2

REPORT INFORMATION
  Report Type: Spontaneous
  Country: US (occurrence: US)
  Receive Date: 20160120
  Receipt Date: 20160411
  Transmission Date: 20160815
  Serious: Yes (Other)
  Sender: FDA-Public Use
  Company Number: US-ACTAVIS-2016-00712

PATIENT

DRUGS (1)
  1. OXYCODONE-ACETAMINOPHEN (AELLC) [Suspect]
     Active Substance: ACETAMINOPHEN\OXYCODONE HYDROCHLORIDE
     Indication: PRODUCT USED FOR UNKNOWN INDICATION
     Dosage: 10 MG/325 MG UNKNOWN
     Route: 065

REACTIONS (14)
  - Vomiting [Unknown]
  - Drug ineffective [Unknown]
  - Palpitations [Unknown]
  - Mood swings [Unknown]
  - Nausea [Unknown]
  - Pyrexia [Unknown]
  - Urinary retention [Unknown]
  - Spinal pain [Unknown]
  - Dizziness [Unknown]
  - Dehydration [Unknown]
  - Gait disturbance [Unknown]
  - Activities of daily living impaired [Unknown]
  - Malaise [Unknown]
  - Migraine [Unknown]
